FAERS Safety Report 24375565 (Version 1)
Quarter: 2024Q3

REPORT INFORMATION
  Report Type: Spontaneous
  Country: IT (occurrence: IT)
  Receive Date: 20240928
  Receipt Date: 20240928
  Transmission Date: 20241016
  Serious: Yes (Hospitalization, Other)
  Sender: CELLTRION
  Company Number: IT-Accord-360306

PATIENT

DRUGS (97)
  1. BEVACIZUMAB [Suspect]
     Active Substance: BEVACIZUMAB
     Indication: Colorectal cancer
     Dosage: 520 MILLIGRAM, SINGLE DOSE (REGIMEN 1)
     Route: 041
     Dates: start: 20220808, end: 20220808
  2. BEVACIZUMAB [Suspect]
     Active Substance: BEVACIZUMAB
     Dosage: 520 MILLIGRAM, SINGLE DOSE (REGIMEN 1)
     Route: 041
     Dates: start: 20220906, end: 20220906
  3. BEVACIZUMAB [Suspect]
     Active Substance: BEVACIZUMAB
     Dosage: 520 MILLIGRAM, SINGLE DOSE (REGIMEN 1)
     Route: 041
     Dates: start: 20230117, end: 20230117
  4. BEVACIZUMAB [Suspect]
     Active Substance: BEVACIZUMAB
     Dosage: 520 MILLIGRAM, SINGLE DOSE (REGIMEN 1)
     Route: 041
     Dates: start: 20230131, end: 20230131
  5. BEVACIZUMAB [Suspect]
     Active Substance: BEVACIZUMAB
     Dosage: 520 MILLIGRAM, SINGLE DOSE (REGIMEN 1)
     Route: 041
     Dates: start: 20220711, end: 20220711
  6. BEVACIZUMAB [Suspect]
     Active Substance: BEVACIZUMAB
     Dosage: 520 MILLIGRAM, SINGLE DOSE (REGIMEN 1)
     Route: 041
     Dates: start: 20230102, end: 20230102
  7. BEVACIZUMAB [Suspect]
     Active Substance: BEVACIZUMAB
     Dosage: 520 MILLIGRAM, SINGLE DOSE (REGIMEN 1)
     Route: 041
     Dates: start: 20221219, end: 20221219
  8. BEVACIZUMAB [Suspect]
     Active Substance: BEVACIZUMAB
     Dosage: 520 MILLIGRAM, SINGLE DOSE (REGIMEN 1)
     Route: 041
     Dates: start: 20221019, end: 20221019
  9. BEVACIZUMAB [Suspect]
     Active Substance: BEVACIZUMAB
     Dosage: 520 MILLIGRAM, SINGLE DOSE (REGIMEN 1)
     Route: 041
     Dates: start: 20230215, end: 20230215
  10. BEVACIZUMAB [Suspect]
     Active Substance: BEVACIZUMAB
     Dosage: 520 MILLIGRAM, SINGLE DOSE (REGIMEN 1)
     Route: 041
     Dates: start: 20220921, end: 20220921
  11. BEVACIZUMAB [Suspect]
     Active Substance: BEVACIZUMAB
     Dosage: 520 MILLIGRAM, SINGLE DOSE (REGIMEN 1)
     Route: 041
     Dates: start: 20221102, end: 20221102
  12. BEVACIZUMAB [Suspect]
     Active Substance: BEVACIZUMAB
     Dosage: 520 MILLIGRAM, SINGLE DOSE (REGIMEN 1)
     Route: 041
     Dates: start: 20220823, end: 20220823
  13. BEVACIZUMAB [Suspect]
     Active Substance: BEVACIZUMAB
     Dosage: 520 MILLIGRAM, SINGLE DOSE (REGIMEN 1)
     Route: 041
     Dates: start: 20221005, end: 20221005
  14. BEVACIZUMAB [Suspect]
     Active Substance: BEVACIZUMAB
     Dosage: 520 MILLIGRAM, SINGLE DOSE (REGIMEN 1)
     Route: 041
     Dates: start: 20221116, end: 20221116
  15. BEVACIZUMAB [Suspect]
     Active Substance: BEVACIZUMAB
     Dosage: 520 MILLIGRAM, SINGLE DOSE (REGIMEN 1)
     Route: 041
     Dates: start: 20220725, end: 20220725
  16. LEUCOVORIN [Suspect]
     Active Substance: LEUCOVORIN\LEUCOVORIN CALCIUM
     Indication: Colorectal cancer
     Dosage: 400 MILLIGRAM, SINGLE DOSE
     Dates: start: 20220921, end: 20220921
  17. LEUCOVORIN [Suspect]
     Active Substance: LEUCOVORIN\LEUCOVORIN CALCIUM
     Dosage: 400 MILLIGRAM, SINGLE DOSE
     Dates: start: 20230117, end: 20230117
  18. LEUCOVORIN [Suspect]
     Active Substance: LEUCOVORIN\LEUCOVORIN CALCIUM
     Dosage: 400 MILLIGRAM, SINGLE DOSE
     Dates: start: 20220808, end: 20220808
  19. LEUCOVORIN [Suspect]
     Active Substance: LEUCOVORIN\LEUCOVORIN CALCIUM
     Dosage: 400 MILLIGRAM, SINGLE DOSE
     Dates: start: 20230131, end: 20230131
  20. LEUCOVORIN [Suspect]
     Active Substance: LEUCOVORIN\LEUCOVORIN CALCIUM
     Dosage: 400 MILLIGRAM, SINGLE DOSE
     Dates: start: 20220725, end: 20220725
  21. LEUCOVORIN [Suspect]
     Active Substance: LEUCOVORIN\LEUCOVORIN CALCIUM
     Dosage: 400 MILLIGRAM, SINGLE DOSE
     Dates: start: 20230102, end: 20230102
  22. LEUCOVORIN [Suspect]
     Active Substance: LEUCOVORIN\LEUCOVORIN CALCIUM
     Dosage: 400 MILLIGRAM, SINGLE DOSE
     Dates: start: 20221116, end: 20221116
  23. LEUCOVORIN [Suspect]
     Active Substance: LEUCOVORIN\LEUCOVORIN CALCIUM
     Dosage: 400 MILLIGRAM, SINGLE DOSE
     Dates: start: 20220906, end: 20220906
  24. LEUCOVORIN [Suspect]
     Active Substance: LEUCOVORIN\LEUCOVORIN CALCIUM
     Dosage: 400 MILLIGRAM, SINGLE DOSE
     Dates: start: 20230215, end: 20230215
  25. LEUCOVORIN [Suspect]
     Active Substance: LEUCOVORIN\LEUCOVORIN CALCIUM
     Dosage: 400 MILLIGRAM, SINGLE DOSE
     Dates: start: 20221005, end: 20221005
  26. LEUCOVORIN [Suspect]
     Active Substance: LEUCOVORIN\LEUCOVORIN CALCIUM
     Dosage: 400 MILLIGRAM, SINGLE DOSE
     Dates: start: 20220711, end: 20220711
  27. LEUCOVORIN [Suspect]
     Active Substance: LEUCOVORIN\LEUCOVORIN CALCIUM
     Dosage: 400 MILLIGRAM, SINGLE DOSE
     Dates: start: 20221219, end: 20221219
  28. LEUCOVORIN [Suspect]
     Active Substance: LEUCOVORIN\LEUCOVORIN CALCIUM
     Dosage: 400 MILLIGRAM, SINGLE DOSE
     Dates: start: 20221102, end: 20221102
  29. LEUCOVORIN [Suspect]
     Active Substance: LEUCOVORIN\LEUCOVORIN CALCIUM
     Dosage: 400 MILLIGRAM, SINGLE DOSE
     Dates: start: 20221019, end: 20221019
  30. LEUCOVORIN [Suspect]
     Active Substance: LEUCOVORIN\LEUCOVORIN CALCIUM
     Dosage: 400 MILLIGRAM, SINGLE DOSE
     Dates: start: 20220823, end: 20220823
  31. OXALIPLATIN [Suspect]
     Active Substance: OXALIPLATIN
     Indication: Colorectal cancer
     Dosage: 187 MILLIGRAM, SINGLE DOSE
     Route: 041
     Dates: start: 20221102, end: 20221102
  32. OXALIPLATIN [Suspect]
     Active Substance: OXALIPLATIN
     Dosage: 187 MILLIGRAM, SINGLE DOSE
     Route: 041
     Dates: start: 20220921, end: 20220921
  33. OXALIPLATIN [Suspect]
     Active Substance: OXALIPLATIN
     Dosage: 187 MILLIGRAM, SINGLE DOSE
     Route: 041
     Dates: start: 20220823, end: 20220823
  34. OXALIPLATIN [Suspect]
     Active Substance: OXALIPLATIN
     Dosage: 187 MILLIGRAM, SINGLE DOSE
     Route: 041
     Dates: start: 20221019, end: 20221019
  35. OXALIPLATIN [Suspect]
     Active Substance: OXALIPLATIN
     Dosage: 187 MILLIGRAM, SINGLE DOSE
     Route: 041
     Dates: start: 20230102, end: 20230102
  36. OXALIPLATIN [Suspect]
     Active Substance: OXALIPLATIN
     Dosage: 187 MILLIGRAM, SINGLE DOSE
     Route: 041
     Dates: start: 20220808, end: 20220808
  37. OXALIPLATIN [Suspect]
     Active Substance: OXALIPLATIN
     Dosage: 187 MILLIGRAM, SINGLE DOSE
     Route: 041
     Dates: start: 20220725, end: 20220725
  38. OXALIPLATIN [Suspect]
     Active Substance: OXALIPLATIN
     Dosage: 187 MILLIGRAM, SINGLE DOSE
     Route: 041
     Dates: start: 20220906, end: 20220906
  39. OXALIPLATIN [Suspect]
     Active Substance: OXALIPLATIN
     Dosage: 187 MILLIGRAM, SINGLE DOSE
     Route: 041
     Dates: start: 20220711, end: 20220711
  40. OXALIPLATIN [Suspect]
     Active Substance: OXALIPLATIN
     Dosage: 187 MILLIGRAM, SINGLE DOSE
     Route: 041
     Dates: start: 20221219, end: 20221219
  41. OXALIPLATIN [Suspect]
     Active Substance: OXALIPLATIN
     Dosage: 187 MILLIGRAM, SINGLE DOSE
     Route: 041
     Dates: start: 20221005, end: 20221005
  42. OXALIPLATIN [Suspect]
     Active Substance: OXALIPLATIN
     Dosage: 187 MILLIGRAM, SINGLE DOSE
     Route: 041
     Dates: start: 20221116, end: 20221116
  43. FLUOROURACIL [Suspect]
     Active Substance: FLUOROURACIL
     Indication: Colorectal cancer
     Dosage: 880 MILLIGRAM, SINGLE DOSE (REGIMEN 1)
     Route: 040
     Dates: start: 20221019, end: 20221019
  44. FLUOROURACIL [Suspect]
     Active Substance: FLUOROURACIL
     Dosage: 880 MILLIGRAM, SINGLE DOSE (REGIMEN 1)
     Route: 040
     Dates: start: 20221019, end: 20221019
  45. FLUOROURACIL [Suspect]
     Active Substance: FLUOROURACIL
     Dosage: 880 MILLIGRAM, SINGLE DOSE (REGIMEN 1)
     Route: 040
     Dates: start: 20220711, end: 20220711
  46. FLUOROURACIL [Suspect]
     Active Substance: FLUOROURACIL
     Dosage: 880 MILLIGRAM, SINGLE DOSE (REGIMEN 1)
     Route: 040
     Dates: start: 20220711, end: 20220711
  47. FLUOROURACIL [Suspect]
     Active Substance: FLUOROURACIL
     Dosage: 880 MILLIGRAM, SINGLE DOSE (REGIMEN 2)
     Route: 040
     Dates: start: 20230117, end: 20230117
  48. FLUOROURACIL [Suspect]
     Active Substance: FLUOROURACIL
     Dosage: 5280 MILLIGRAM, SINGLE DOSE (REGIMEN 2)
     Route: 041
     Dates: start: 20230131, end: 20230131
  49. FLUOROURACIL [Suspect]
     Active Substance: FLUOROURACIL
     Dosage: 880 MILLIGRAM, SINGLE DOSE (REGIMEN 2)
     Route: 040
     Dates: start: 20220725, end: 20220725
  50. FLUOROURACIL [Suspect]
     Active Substance: FLUOROURACIL
     Dosage: 5280 MILLIGRAM, SINGLE DOSE (REGIMEN 2)
     Route: 041
     Dates: start: 20220906, end: 20220906
  51. FLUOROURACIL [Suspect]
     Active Substance: FLUOROURACIL
     Dosage: 5280 MILLIGRAM, SINGLE DOSE (REGIMEN 2)
     Route: 041
     Dates: start: 20221116, end: 20221116
  52. FLUOROURACIL [Suspect]
     Active Substance: FLUOROURACIL
     Dosage: 5280 MILLIGRAM, SINGLE DOSE (REGIMEN 2)
     Route: 041
     Dates: start: 20220808, end: 20220808
  53. FLUOROURACIL [Suspect]
     Active Substance: FLUOROURACIL
     Dosage: 880 MILLIGRAM, SINGLE DOSE (REGIMEN 2)
     Route: 040
     Dates: start: 20230215, end: 20230215
  54. FLUOROURACIL [Suspect]
     Active Substance: FLUOROURACIL
     Dosage: 5280 MILLIGRAM, SINGLE DOSE (REGIMEN 2)
     Route: 041
     Dates: start: 20230215, end: 20230215
  55. FLUOROURACIL [Suspect]
     Active Substance: FLUOROURACIL
     Dosage: 5280 MILLIGRAM, SINGLE DOSE (REGIMEN 2)
     Route: 041
     Dates: start: 20220921, end: 20220921
  56. FLUOROURACIL [Suspect]
     Active Substance: FLUOROURACIL
     Dosage: 5280 MILLIGRAM, SINGLE DOSE (REGIMEN 2)
     Route: 041
     Dates: start: 20220725, end: 20220725
  57. FLUOROURACIL [Suspect]
     Active Substance: FLUOROURACIL
     Dosage: 880 MILLIGRAM, SINGLE DOSE (REGIMEN 2)
     Route: 040
     Dates: start: 20221116, end: 20221116
  58. FLUOROURACIL [Suspect]
     Active Substance: FLUOROURACIL
     Dosage: 5280 MILLIGRAM, SINGLE DOSE (REGIMEN 2)
     Route: 041
     Dates: start: 20230117, end: 20230117
  59. FLUOROURACIL [Suspect]
     Active Substance: FLUOROURACIL
     Dosage: 5280 MILLIGRAM, SINGLE DOSE (REGIMEN 2)
     Route: 041
     Dates: start: 20230117, end: 20230117
  60. FLUOROURACIL [Suspect]
     Active Substance: FLUOROURACIL
     Dosage: 5280 MILLIGRAM, SINGLE DOSE (REGIMEN 2)
     Route: 041
     Dates: start: 20221219, end: 20221219
  61. FLUOROURACIL [Suspect]
     Active Substance: FLUOROURACIL
     Dosage: 880 MILLIGRAM, SINGLE DOSE (REGIMEN 2)
     Route: 040
     Dates: start: 20221005, end: 20221005
  62. FLUOROURACIL [Suspect]
     Active Substance: FLUOROURACIL
     Dosage: 880 MILLIGRAM, SINGLE DOSE (REGIMEN 2)
     Route: 040
     Dates: start: 20220921, end: 20220921
  63. FLUOROURACIL [Suspect]
     Active Substance: FLUOROURACIL
     Dosage: 880 MILLIGRAM, SINGLE DOSE (REGIMEN 2)
     Route: 040
     Dates: start: 20230131, end: 20230131
  64. FLUOROURACIL [Suspect]
     Active Substance: FLUOROURACIL
     Dosage: 880 MILLIGRAM, SINGLE DOSE (REGIMEN 2)
     Route: 040
     Dates: start: 20230131, end: 20230131
  65. FLUOROURACIL [Suspect]
     Active Substance: FLUOROURACIL
     Dosage: 5280 MILLIGRAM, SINGLE DOSE (REGIMEN 2)
     Route: 041
     Dates: start: 20221102, end: 20221102
  66. FLUOROURACIL [Suspect]
     Active Substance: FLUOROURACIL
     Dosage: 5280 MILLIGRAM, SINGLE DOSE (REGIMEN 2)
     Route: 041
     Dates: start: 20220823, end: 20220823
  67. FLUOROURACIL [Suspect]
     Active Substance: FLUOROURACIL
     Dosage: 880 MILLIGRAM, SINGLE DOSE (REGIMEN 2)
     Route: 040
     Dates: start: 20221219, end: 20221219
  68. FLUOROURACIL [Suspect]
     Active Substance: FLUOROURACIL
     Dosage: 880 MILLIGRAM, SINGLE DOSE (REGIMEN 2)
     Route: 040
     Dates: start: 20221102, end: 20221102
  69. FLUOROURACIL [Suspect]
     Active Substance: FLUOROURACIL
     Dosage: 5280 MILLIGRAM, SINGLE DOSE (REGIMEN 2)
     Route: 041
     Dates: start: 20221005, end: 20221005
  70. FLUOROURACIL [Suspect]
     Active Substance: FLUOROURACIL
     Dosage: 5280 MILLIGRAM, SINGLE DOSE (REGIMEN 2)
     Route: 041
     Dates: start: 20230102, end: 20230102
  71. FLUOROURACIL [Suspect]
     Active Substance: FLUOROURACIL
     Dosage: 880 MILLIGRAM, SINGLE DOSE (REGIMEN 2)
     Route: 040
     Dates: start: 20220906, end: 20220906
  72. FLUOROURACIL [Suspect]
     Active Substance: FLUOROURACIL
     Dosage: 5280 MILLIGRAM, SINGLE DOSE (REGIMEN 2)
     Route: 041
     Dates: start: 20220711, end: 20220711
  73. FLUOROURACIL [Suspect]
     Active Substance: FLUOROURACIL
     Dosage: 880 MILLIGRAM, SINGLE DOSE (REGIMEN 2)
     Route: 040
     Dates: start: 20220808, end: 20220808
  74. FLUOROURACIL [Suspect]
     Active Substance: FLUOROURACIL
     Dosage: 5280 MILLIGRAM, SINGLE DOSE (REGIMEN 2)
     Route: 041
     Dates: start: 20221019, end: 20221019
  75. FLUOROURACIL [Suspect]
     Active Substance: FLUOROURACIL
     Dosage: 880 MILLIGRAM, SINGLE DOSE (REGIMEN 2)
     Route: 040
     Dates: start: 20230102, end: 20230102
  76. FLUOROURACIL [Suspect]
     Active Substance: FLUOROURACIL
     Dosage: 880 MILLIGRAM, SINGLE DOSE (REGIMEN 2)
     Route: 040
     Dates: start: 20220823, end: 20220823
  77. POLYETHYLENE GLYCOL 3350\POTASSIUM CHLORIDE\SODIUM BICARBONATE\SODIUM [Concomitant]
     Active Substance: POLYETHYLENE GLYCOL 3350\POTASSIUM CHLORIDE\SODIUM BICARBONATE\SODIUM CHLORIDE
     Indication: Premedication
     Dosage: UNK
     Dates: start: 20221118
  78. FUROSEMIDE [Concomitant]
     Active Substance: FUROSEMIDE
     Indication: Premedication
     Dosage: UNK
     Dates: start: 20220921, end: 20230224
  79. URECARE [Concomitant]
     Indication: Adverse event
     Dosage: UNK
     Dates: start: 20221102
  80. CHLORPROMAZINE [Concomitant]
     Active Substance: CHLORPROMAZINE
     Dosage: UNK
     Dates: start: 20230123, end: 20230302
  81. SODIUM CHLORIDE [Concomitant]
     Active Substance: SODIUM CHLORIDE
     Dosage: UNK
     Dates: start: 20230227, end: 20230302
  82. DEXAMETHASONE [Concomitant]
     Active Substance: DEXAMETHASONE
     Indication: Premedication
     Dosage: UNK
     Dates: start: 20220823
  83. METOCLOPRAMIDE [Concomitant]
     Active Substance: METOCLOPRAMIDE
     Indication: Adverse event
     Dosage: UNK
     Dates: start: 20230224, end: 20230303
  84. CEFOTAXIME [Concomitant]
     Active Substance: CEFOTAXIME SODIUM
     Indication: Prophylaxis
     Dosage: UNK
     Dates: start: 20230228
  85. ESOMEPRAZOLE [Concomitant]
     Active Substance: ESOMEPRAZOLE
     Indication: Premedication
     Dosage: UNK
     Dates: start: 20230126, end: 20230224
  86. NYSTATIN [Concomitant]
     Active Substance: NYSTATIN
     Indication: Adverse event
     Dosage: UNK
     Dates: start: 20230224, end: 20230303
  87. PALONOSETRON [Concomitant]
     Active Substance: PALONOSETRON
     Indication: Premedication
     Dosage: UNK
     Dates: start: 20220823
  88. NALOXONE HYDROCHLORIDE\OXYCODONE HYDROCHLORIDE [Concomitant]
     Active Substance: NALOXONE HYDROCHLORIDE\OXYCODONE HYDROCHLORIDE
     Indication: Premedication
  89. AMBROXOL HYDROCHLORIDE [Concomitant]
     Active Substance: AMBROXOL HYDROCHLORIDE
     Indication: Adverse event
     Dosage: UNK
     Dates: start: 20230125, end: 20230131
  90. FLUCONAZOLE [Concomitant]
     Active Substance: FLUCONAZOLE
     Indication: Adverse event
     Dosage: UNK
     Dates: start: 20230224, end: 20230302
  91. TALOFEN [Concomitant]
     Active Substance: PROMAZINE HYDROCHLORIDE
     Dosage: UNK
     Dates: start: 20230303, end: 20230308
  92. PANTOPRAZOLE [Concomitant]
     Active Substance: PANTOPRAZOLE
     Indication: Premedication
     Dosage: UNK
     Dates: start: 20220823
  93. SILYMARIN [SILYBUM MARIANUM SEED] [Concomitant]
     Dosage: UNK
     Dates: start: 20220702
  94. BISOPROLOL FUMARATE [Concomitant]
     Active Substance: BISOPROLOL FUMARATE
     Dosage: UNK
     Dates: start: 20210518
  95. CHLORPHENIRAMINE MALEATE [Concomitant]
     Active Substance: CHLORPHENIRAMINE MALEATE
     Indication: Premedication
     Dosage: UNK
     Dates: start: 20220823
  96. BECLOMETHASONE DIPROPIONATE [Concomitant]
     Active Substance: BECLOMETHASONE DIPROPIONATE
     Indication: Adverse event
     Dosage: UNK
     Dates: start: 20230125, end: 20230131
  97. PROCTOLYN [Concomitant]
     Indication: Adverse event
     Dosage: UNK
     Dates: start: 20220719

REACTIONS (3)
  - Hyperbilirubinaemia [Recovering/Resolving]
  - Oral candidiasis [Recovered/Resolved]
  - Hiccups [Unknown]

NARRATIVE: CASE EVENT DATE: 20230220
